FAERS Safety Report 15635495 (Version 17)
Quarter: 2022Q1

REPORT INFORMATION
  Report Type: Report from Study
  Country: CA (occurrence: CA)
  Receive Date: 20181120
  Receipt Date: 20220223
  Transmission Date: 20220423
  Serious: Yes (Other)
  Sender: FDA-Public Use
  Company Number: CA-BRISTOL-MYERS SQUIBB COMPANY-BMS-2017-062008

PATIENT
  Age: 64 Year
  Sex: Male

DRUGS (10)
  1. ABATACEPT [Suspect]
     Active Substance: ABATACEPT
     Indication: Rheumatoid arthritis
     Dosage: 1000 MILLIGRAM, Q4WK
     Route: 042
     Dates: start: 20170430
  2. ABATACEPT [Suspect]
     Active Substance: ABATACEPT
     Dosage: 1000 MILLIGRAM, Q4WK
     Route: 042
  3. CORTISONE [Concomitant]
     Active Substance: CORTISONE
     Indication: Product used for unknown indication
     Dosage: UNK
     Route: 065
  4. NORVASC [Concomitant]
     Active Substance: AMLODIPINE BESYLATE
     Indication: Product used for unknown indication
     Dosage: UNK
     Route: 065
  5. LIPITOR [Concomitant]
     Active Substance: ATORVASTATIN CALCIUM
     Indication: Product used for unknown indication
     Dosage: UNK
     Route: 065
  6. ASPIRIN [Concomitant]
     Active Substance: ASPIRIN
     Indication: Product used for unknown indication
     Dosage: UNK
     Route: 065
  7. IMOVANE [Concomitant]
     Active Substance: ZOPICLONE
     Indication: Product used for unknown indication
     Dosage: UNK
     Route: 065
  8. QUETIAPINE [Concomitant]
     Active Substance: QUETIAPINE
     Indication: Product used for unknown indication
     Dosage: UNK
     Route: 065
  9. APO ATENOL [Concomitant]
     Indication: Product used for unknown indication
     Dosage: UNK
     Route: 065
  10. PLAQUENIL [Concomitant]
     Active Substance: HYDROXYCHLOROQUINE SULFATE
     Indication: Product used for unknown indication
     Dosage: UNK
     Route: 065

REACTIONS (11)
  - Arthropathy [Unknown]
  - Arthralgia [Unknown]
  - Pain [Unknown]
  - Joint swelling [Unknown]
  - Blood pressure increased [Unknown]
  - Blood pressure systolic increased [Recovered/Resolved]
  - Blood pressure diastolic increased [Recovered/Resolved]
  - Heart rate decreased [Not Recovered/Not Resolved]
  - Inappropriate schedule of product administration [Unknown]
  - Malaise [Unknown]
  - Respiratory rate increased [Unknown]

NARRATIVE: CASE EVENT DATE: 20200622
